FAERS Safety Report 22291579 (Version 3)
Quarter: 2023Q2

REPORT INFORMATION
  Report Type: Spontaneous
  Country: GB (occurrence: GB)
  Receive Date: 20230507
  Receipt Date: 20230614
  Transmission Date: 20230722
  Serious: Yes (Hospitalization)
  Sender: FDA-Public Use
  Company Number: GB-AMGEN-GBRSP2023074985

PATIENT
  Age: 67 Year
  Sex: Female

DRUGS (74)
  1. TRASTUZUMAB [Suspect]
     Active Substance: TRASTUZUMAB
     Indication: Breast cancer metastatic
     Dosage: 567 MILLIGRAM (LOADING DOSE)
     Route: 042
     Dates: start: 20150811, end: 20150811
  2. TRASTUZUMAB [Suspect]
     Active Substance: TRASTUZUMAB
     Dosage: 420 MILLIGRAM, Q3WK
     Route: 042
     Dates: start: 20150903, end: 20151015
  3. TRASTUZUMAB [Suspect]
     Active Substance: TRASTUZUMAB
     Dosage: 567 MILLIGRAM (LOADING DOSE)
     Route: 042
     Dates: start: 20160107, end: 20160107
  4. TRASTUZUMAB [Suspect]
     Active Substance: TRASTUZUMAB
     Dosage: 441 MILLIGRAM, Q3WK
     Route: 042
     Dates: start: 20160127, end: 20161119
  5. TRASTUZUMAB [Suspect]
     Active Substance: TRASTUZUMAB
     Dosage: 693 MILLIGRAM (LOADING DOSE)
     Route: 042
     Dates: start: 20171120
  6. TRASTUZUMAB [Suspect]
     Active Substance: TRASTUZUMAB
     Dosage: 515 MILLIGRAM, Q3WK
     Route: 042
     Dates: start: 20171211, end: 20190329
  7. TRASTUZUMAB [Suspect]
     Active Substance: TRASTUZUMAB
     Dosage: 300 MILLIGRAM, Q3WK
     Route: 042
     Dates: start: 20190716, end: 20190813
  8. TRASTUZUMAB [Suspect]
     Active Substance: TRASTUZUMAB
     Dosage: 260 MILLIGRAM, Q3WK
     Route: 042
     Dates: start: 20190814, end: 20190903
  9. TRASTUZUMAB [Suspect]
     Active Substance: TRASTUZUMAB
     Dosage: 200 MILLIGRAM, Q3WK
     Route: 042
     Dates: start: 20190904
  10. TRASTUZUMAB [Suspect]
     Active Substance: TRASTUZUMAB
     Dosage: 504 MILLIGRAM
     Route: 042
     Dates: start: 20210211, end: 20210211
  11. TRASTUZUMAB [Suspect]
     Active Substance: TRASTUZUMAB
     Dosage: 378 MILLIGRAM, Q3WK
     Route: 042
     Dates: start: 20210304, end: 20210729
  12. PERTUZUMAB [Suspect]
     Active Substance: PERTUZUMAB
     Indication: Product used for unknown indication
     Dosage: 840 MILLIGRAM
     Route: 042
  13. PERTUZUMAB [Suspect]
     Active Substance: PERTUZUMAB
     Dosage: 840 MILLIGRAM (LOADING DOSE)
     Route: 042
     Dates: start: 20150811, end: 20150811
  14. PERTUZUMAB [Suspect]
     Active Substance: PERTUZUMAB
     Dosage: 420 MILLIGRAM, Q3WK
     Route: 042
     Dates: start: 20150903, end: 20151015
  15. PERTUZUMAB [Suspect]
     Active Substance: PERTUZUMAB
     Dosage: 420 MILLIGRAM, Q3WK
     Route: 042
     Dates: start: 20150903, end: 20201119
  16. PERTUZUMAB [Suspect]
     Active Substance: PERTUZUMAB
     Dosage: 420 MILLIGRAM, Q3WK
     Route: 042
     Dates: start: 20171211, end: 20190329
  17. PERTUZUMAB [Suspect]
     Active Substance: PERTUZUMAB
     Dosage: 840 MILLIGRAM (LOADING DOSE)
     Route: 042
     Dates: start: 20171120, end: 20171120
  18. PERTUZUMAB [Suspect]
     Active Substance: PERTUZUMAB
     Dosage: 840 MILLIGRAM
     Route: 042
     Dates: start: 20210211, end: 20210211
  19. PERTUZUMAB [Suspect]
     Active Substance: PERTUZUMAB
     Dosage: 420 MILLIGRAM, Q3WK
     Route: 042
     Dates: start: 20210304, end: 20210729
  20. PERTUZUMAB [Suspect]
     Active Substance: PERTUZUMAB
     Dosage: 1200 MILLIGRAM, Q3WK
     Route: 058
     Dates: start: 20210819, end: 20221215
  21. DOCETAXEL [Suspect]
     Active Substance: DOCETAXEL
     Indication: Product used for unknown indication
     Dosage: 140 MILLIGRAM, Q3WK
     Route: 042
     Dates: start: 20150811, end: 20151203
  22. DOCETAXEL [Suspect]
     Active Substance: DOCETAXEL
     Dosage: 140 MILLIGRAM, Q3WK
     Route: 042
     Dates: start: 20171120, end: 20180101
  23. DOCETAXEL [Suspect]
     Active Substance: DOCETAXEL
     Dosage: 200 MILLIGRAM, Q3WK
     Route: 042
     Dates: start: 20171120, end: 20180101
  24. DOCETAXEL [Suspect]
     Active Substance: DOCETAXEL
     Dosage: 180 MILLIGRAM, Q3WK
     Route: 042
     Dates: start: 20180122
  25. AMOXICILLIN [Concomitant]
     Active Substance: AMOXICILLIN
     Indication: Lower respiratory tract infection
     Dosage: 3 MILLIGRAM
     Route: 048
     Dates: start: 20190505, end: 20190509
  26. AMOXICILLIN [Concomitant]
     Active Substance: AMOXICILLIN
     Dosage: 500 MILLIGRAM, TID
     Route: 048
     Dates: start: 20190505, end: 20190509
  27. AMOXICILLIN [Concomitant]
     Active Substance: AMOXICILLIN
     Dosage: 625 MILLIGRAM, TID
     Route: 048
     Dates: start: 20190509, end: 20190515
  28. CARBOCYSTEINE [Concomitant]
     Active Substance: CARBOCYSTEINE
     Indication: Lower respiratory tract infection
     Dosage: 3 MILLIGRAM
     Route: 048
     Dates: start: 20190509, end: 20190515
  29. CARBOCYSTEINE [Concomitant]
     Active Substance: CARBOCYSTEINE
     Dosage: 750 MILLIGRAM, TID
     Route: 048
     Dates: start: 20190509, end: 20190515
  30. CLARITHROMYCIN [Concomitant]
     Active Substance: CLARITHROMYCIN
     Dosage: 3 MILLIGRAM
     Route: 048
     Dates: start: 20171228, end: 20180103
  31. CLARITHROMYCIN [Concomitant]
     Active Substance: CLARITHROMYCIN
     Dosage: 500 MILLIGRAM, TID
     Route: 048
     Dates: start: 20171228, end: 20180103
  32. AMOXICILLIN [Concomitant]
     Active Substance: AMOXICILLIN
     Dosage: 625 MILLIGRAM
     Route: 048
     Dates: start: 20190509, end: 20190515
  33. DEXAMETHASONE [Concomitant]
     Active Substance: DEXAMETHASONE
     Dosage: 8 MILLIGRAM
     Route: 048
     Dates: start: 20151229, end: 20151231
  34. DEXAMETHASONE [Concomitant]
     Active Substance: DEXAMETHASONE
     Dosage: 8 MILLIGRAM
     Route: 048
     Dates: start: 20151011, end: 20151013
  35. DEXAMETHASONE [Concomitant]
     Active Substance: DEXAMETHASONE
     Dosage: 8 MILLIGRAM
     Route: 048
     Dates: start: 20150902, end: 20150904
  36. DEXAMETHASONE [Concomitant]
     Active Substance: DEXAMETHASONE
     Dosage: 8 MILLIGRAM
     Route: 048
     Dates: start: 20151229, end: 20151231
  37. DEXAMETHASONE [Concomitant]
     Active Substance: DEXAMETHASONE
     Dosage: 8 MILLIGRAM
     Route: 048
     Dates: start: 20151015, end: 20151017
  38. DEXAMETHASONE [Concomitant]
     Active Substance: DEXAMETHASONE
     Dosage: 8 MILLIGRAM
     Route: 048
     Dates: start: 20151229, end: 20151231
  39. DEXAMETHASONE [Concomitant]
     Active Substance: DEXAMETHASONE
     Dosage: 8 MILLIGRAM
     Route: 048
     Dates: start: 20150809, end: 20150811
  40. FILGRASTIM [Concomitant]
     Active Substance: FILGRASTIM
     Dosage: UNK
     Route: 058
     Dates: start: 20151203, end: 20151203
  41. FRAGMIN [Concomitant]
     Active Substance: DALTEPARIN SODIUM
     Dosage: 15000 UNIT EVERY DAY
     Route: 058
     Dates: start: 20160721
  42. MORPHINE [Concomitant]
     Active Substance: MORPHINE
     Dosage: 10 MILLIGRAM, TID
     Route: 048
     Dates: start: 20150715
  43. MORPHINE [Concomitant]
     Active Substance: MORPHINE
     Dosage: 10 MILLIGRAM, BID
     Route: 048
     Dates: start: 20150902, end: 20150902
  44. MORPHINE [Concomitant]
     Active Substance: MORPHINE
     Dosage: 10 MILLIGRAM, BID
     Route: 048
     Dates: start: 20150816, end: 20150912
  45. MORPHINE [Concomitant]
     Active Substance: MORPHINE
     Dosage: 10 MILLIGRAM, BID
     Route: 048
     Dates: start: 20150713, end: 20150713
  46. MORPHINE [Concomitant]
     Active Substance: MORPHINE
     Dosage: 10 MILLIGRAM, BID
     Route: 048
     Dates: start: 20150815, end: 20150815
  47. MORPHINE [Concomitant]
     Active Substance: MORPHINE
     Dosage: 10 MILLIGRAM, BID
     Route: 048
     Dates: start: 20150714, end: 20150714
  48. MORPHINE [Concomitant]
     Active Substance: MORPHINE
     Dosage: 10 MILLIGRAM, BID
     Route: 048
     Dates: start: 20150904, end: 20151001
  49. GABAPENTIN [Concomitant]
     Active Substance: GABAPENTIN
     Dosage: 100 MILLIGRAM, QD
     Route: 048
     Dates: start: 20150921, end: 20150923
  50. GABAPENTIN [Concomitant]
     Active Substance: GABAPENTIN
     Dosage: 100 MILLIGRAM, QWK
     Route: 048
     Dates: start: 20150713, end: 20150722
  51. GABAPENTIN [Concomitant]
     Active Substance: GABAPENTIN
     Dosage: 100 MILLIGRAM, QD
     Route: 048
     Dates: start: 20150924, end: 20150930
  52. LANSOPRAZOLE [Concomitant]
     Active Substance: LANSOPRAZOLE
     Dosage: 30 MILLIGRAM, QD
     Route: 048
     Dates: start: 20150921
  53. LANSOPRAZOLE [Concomitant]
     Active Substance: LANSOPRAZOLE
     Dosage: 30 MILLIGRAM, QD
     Route: 048
     Dates: start: 20150723, end: 20150819
  54. LEVOTHYROXINE SODIUM [Concomitant]
     Active Substance: LEVOTHYROXINE SODIUM
     Dosage: 50 MICROGRAM, QD
     Route: 048
     Dates: start: 20150723
  55. LEVOTHYROXINE SODIUM [Concomitant]
     Active Substance: LEVOTHYROXINE SODIUM
     Dosage: 100 MICROGRAM, QD
     Route: 048
     Dates: start: 20150723
  56. ZOPICLONE [Concomitant]
     Active Substance: ZOPICLONE
     Dosage: 3.75 MILLIGRAM
     Route: 048
     Dates: start: 20150812, end: 20150908
  57. SIMPLE LINCTUS [Concomitant]
     Active Substance: AMARANTH\CHLOROFORM\CITRIC ACID MONOHYDRATE\PIMPINELLA ANISUM WHOLE
     Dosage: 200 MILLIGRAM, TID
     Route: 048
     Dates: start: 20151104, end: 20151119
  58. MORPHINE SULFATE [Concomitant]
     Active Substance: MORPHINE SULFATE
  59. MORPHINE SULFATE [Concomitant]
     Active Substance: MORPHINE SULFATE
  60. ONDANSETRON [Concomitant]
     Active Substance: ONDANSETRON
     Dosage: 8 MILLIGRAM, QD
     Route: 048
     Dates: start: 20150903, end: 20150903
  61. ONDANSETRON [Concomitant]
     Active Substance: ONDANSETRON
     Dosage: 8 MILLIGRAM
     Route: 048
     Dates: start: 20150810, end: 20150810
  62. ACETAMINOPHEN [Concomitant]
     Active Substance: ACETAMINOPHEN
     Dosage: 1 GRAM, QD
     Route: 048
     Dates: start: 20151203, end: 20151203
  63. ACETAMINOPHEN [Concomitant]
     Active Substance: ACETAMINOPHEN
     Dosage: 1 GRAM, QD
     Route: 048
     Dates: start: 20151015, end: 20151015
  64. ACETAMINOPHEN [Concomitant]
     Active Substance: ACETAMINOPHEN
     Dosage: 1 GRAM, QD
     Route: 048
     Dates: start: 20150810, end: 20150810
  65. ACETAMINOPHEN [Concomitant]
     Active Substance: ACETAMINOPHEN
     Dosage: 1 GRAM, QD
     Route: 048
     Dates: start: 20150924, end: 20150924
  66. METOCLOPRAMIDE [Concomitant]
     Active Substance: METOCLOPRAMIDE
     Dosage: 8 MILLIGRAM
     Route: 048
     Dates: start: 20151012
  67. METOCLOPRAMIDE [Concomitant]
     Active Substance: METOCLOPRAMIDE
     Dosage: 10 MILLIGRAM, AS NECESSARY
     Route: 048
     Dates: start: 20151015, end: 20151015
  68. ASTRAZENECA COVID-19 VACCINE [Concomitant]
     Active Substance: AZD-1222
     Dosage: 0.5 MILLILITER 1 DAY
     Route: 030
     Dates: start: 20210206, end: 20210206
  69. ASTRAZENECA COVID-19 VACCINE [Concomitant]
     Active Substance: AZD-1222
     Dosage: 0.5 MILLILITER 1 DAY
     Route: 030
     Dates: start: 20210424, end: 20210424
  70. AMOXICILLIN\CLAVULANATE POTASSIUM [Concomitant]
     Active Substance: AMOXICILLIN\CLAVULANATE POTASSIUM
     Dosage: 625 MILLIGRAM, TID
     Route: 048
     Dates: start: 20190509, end: 20190515
  71. NAPROXEN [Concomitant]
     Active Substance: NAPROXEN
     Dosage: 250 MILLIGRAM
     Dates: start: 20200210
  72. NICOTINE [Concomitant]
     Active Substance: NICOTINE
     Dosage: 15 MILLIGRAM, QD
     Route: 062
     Dates: start: 20230123, end: 20230130
  73. ALBUTEROL [Concomitant]
     Active Substance: ALBUTEROL
     Dosage: UNK UNK, AS NECESSARY
     Dates: start: 20190509, end: 20190515
  74. SENNA LEAF [Concomitant]
     Active Substance: SENNA LEAF
     Dosage: 15 MILLIGRAM
     Route: 048
     Dates: start: 20230123

REACTIONS (2)
  - Peripheral arterial occlusive disease [Recovered/Resolved]
  - Off label use [Unknown]

NARRATIVE: CASE EVENT DATE: 20221110
